FAERS Safety Report 24186906 (Version 1)
Quarter: 2024Q3

REPORT INFORMATION
  Report Type: Report from Study
  Country: GB (occurrence: GB)
  Receive Date: 20240808
  Receipt Date: 20240808
  Transmission Date: 20241017
  Serious: Yes (Death, Other)
  Sender: SANDOZ
  Company Number: GB-002147023-NVSC2019GB012360

PATIENT
  Sex: Female

DRUGS (2)
  1. HYRIMOZ [Suspect]
     Active Substance: ADALIMUMAB-ADAZ
     Dosage: 40 MG, Q2W,40MG/0.4ML
     Route: 058
  2. HYRIMOZ [Suspect]
     Active Substance: ADALIMUMAB-ADAZ
     Indication: Crohn^s disease
     Dosage: UNK UNK, Q2W (PRE-FILLED PEN),40 MG/0.8 ML
     Route: 065
     Dates: start: 20190722

REACTIONS (5)
  - Death [Fatal]
  - Hypomagnesaemia [Unknown]
  - Rhinorrhoea [Unknown]
  - Myalgia [Unknown]
  - Headache [Unknown]
